FAERS Safety Report 25716203 (Version 1)
Quarter: 2025Q3

REPORT INFORMATION
  Report Type: Spontaneous
  Country: US (occurrence: None)
  Receive Date: 20250822
  Receipt Date: 20250822
  Transmission Date: 20251021
  Serious: Yes (Life-Threatening, Hospitalization)
  Sender: FDA-CTU
  Company Number: None

PATIENT
  Age: 65 Year
  Sex: Male
  Weight: 82.4 kg

DRUGS (1)
  1. FOTIVDA [Suspect]
     Active Substance: TIVOZANIB HYDROCHLORIDE
     Indication: Metastatic renal cell carcinoma
     Route: 048
     Dates: start: 20250806, end: 20250814

REACTIONS (8)
  - Abdominal pain [None]
  - Constipation [None]
  - Renal mass [None]
  - Therapy interrupted [None]
  - Nausea [None]
  - Vomiting [None]
  - Intestinal perforation [None]
  - Sepsis [None]

NARRATIVE: CASE EVENT DATE: 20250817
